FAERS Safety Report 7298579-8 (Version None)
Quarter: 2011Q1

REPORT INFORMATION
  Report Type: 
  Country: None (occurrence: None)
  Receive Date: 20110207
  Receipt Date: 20110125
  Transmission Date: 20110831
  Serious: Yes (Death)
  Sender: FDA-Public Use
  Company Number: KADN20110005

PATIENT
  Age: 29 Year
  Sex: Male

DRUGS (3)
  1. MORPHINE [Suspect]
     Indication: PRODUCT USED FOR UNKNOWN INDICATION
     Dosage: PER ORAL
     Route: 048
     Dates: end: 20090101
  2. DIAZEPAM [Suspect]
     Indication: PRODUCT USED FOR UNKNOWN INDICATION
     Dosage: PER ORAL
     Route: 048
     Dates: end: 20090101
  3. SERTRALINE 50 MG [Suspect]
     Indication: PRODUCT USED FOR UNKNOWN INDICATION
     Dosage: PER ORAL
     Route: 048
     Dates: end: 20090101

REACTIONS (3)
  - TOXICITY TO VARIOUS AGENTS [None]
  - PULMONARY OEDEMA [None]
  - PULMONARY CONGESTION [None]
